FAERS Safety Report 23849364 (Version 1)
Quarter: 2024Q2

REPORT INFORMATION
  Report Type: Spontaneous
  Country: US (occurrence: US)
  Receive Date: 20240513
  Receipt Date: 20240513
  Transmission Date: 20240716
  Serious: Yes (Other)
  Sender: FDA-Public Use
  Company Number: US-Accord-417694

PATIENT
  Age: 53 Year
  Sex: Female

DRUGS (6)
  1. CARBOPLATIN [Suspect]
     Active Substance: CARBOPLATIN
     Indication: Breast cancer
     Dosage: NO OF CYCLE: 6 CYCLE
     Dates: start: 20211228, end: 20220414
  2. DOCETAXEL [Suspect]
     Active Substance: DOCETAXEL\DOCETAXEL ANHYDROUS
     Indication: Breast cancer
     Dosage: DOCETAXEL INJECTION CONCENTRATE; NO. OF CYCLE: 6
     Dates: start: 20211228, end: 20220414
  3. HERCEPTIN [Suspect]
     Active Substance: TRASTUZUMAB
     Indication: Breast cancer
     Dosage: NO. OF CYCLE: 6 CYCLE
     Dates: start: 20211228, end: 20220414
  4. PERJETA [Suspect]
     Active Substance: PERTUZUMAB
     Indication: Breast cancer
     Dosage: NO OF CYCLE: 6
     Dates: start: 20211228, end: 20220414
  5. HERCEPTIN [Suspect]
     Active Substance: TRASTUZUMAB
     Indication: Breast cancer
  6. PERJETA [Suspect]
     Active Substance: PERTUZUMAB
     Indication: Breast cancer

REACTIONS (3)
  - Lacrimal structure injury [Not Recovered/Not Resolved]
  - Swelling of eyelid [Not Recovered/Not Resolved]
  - Off label use [Unknown]

NARRATIVE: CASE EVENT DATE: 20220201
